FAERS Safety Report 8116494-4 (Version None)
Quarter: 2011Q4

REPORT INFORMATION
  Report Type: 
  Country: None (occurrence: None)
  Receive Date: 20111227
  Receipt Date: 20110928
  Transmission Date: 20120403
  Serious: No
  Sender: FDA-Public Use
  Company Number: PHEH2011US03365

PATIENT
  Age: 35 Year
  Sex: Male

DRUGS (6)
  1. GILENYA [Suspect]
     Indication: MULTIPLE SCLEROSIS
     Dosage: 0.5 MG, QD, ORAL
     Route: 048
     Dates: start: 20110831
  2. CHANTIX [Concomitant]
  3. AMBIEN [Concomitant]
  4. ASPIRIN [Concomitant]
  5. NUVIGIL [Concomitant]
  6. NAPROXEN [Concomitant]

REACTIONS (5)
  - SINUS DISORDER [None]
  - HEART RATE DECREASED [None]
  - LETHARGY [None]
  - FATIGUE [None]
  - POOR QUALITY SLEEP [None]
